FAERS Safety Report 10021550 (Version 2)
Quarter: 2015Q1

REPORT INFORMATION
  Report Type: Spontaneous
  Country: SE (occurrence: SE)
  Receive Date: 20140319
  Receipt Date: 20150311
  Transmission Date: 20150720
  Serious: Yes (Hospitalization)
  Sender: FDA-Public Use
  Company Number: SE-SA-2014SA031912

PATIENT
  Age: 72 Year
  Sex: Female

DRUGS (4)
  1. SELOKEN [Concomitant]
     Active Substance: METOPROLOL
     Dosage: STRENGTH: 50MG.
  2. ELIQUIS [Suspect]
     Active Substance: APIXABAN
     Indication: ATRIAL FIBRILLATION
     Dosage: STRENGTH: 5MG FLIMCOATED TABLET/FILMDRAGERAD TABLET.
     Route: 048
     Dates: start: 20131111, end: 20140220
  3. ESOMEPRAZOLE [Concomitant]
     Active Substance: ESOMEPRAZOLE
     Dosage: TABLETTER.
  4. MULTAQ [Suspect]
     Active Substance: DRONEDARONE
     Indication: ATRIAL FIBRILLATION
     Dosage: FILMDRAGERAD TABLET.
     Route: 048
     Dates: start: 20130410

REACTIONS (3)
  - Blindness unilateral [Recovered/Resolved]
  - Transient ischaemic attack [Recovered/Resolved]
  - Malaise [Recovered/Resolved]

NARRATIVE: CASE EVENT DATE: 20140220
